FAERS Safety Report 14643808 (Version 2)
Quarter: 2018Q2

REPORT INFORMATION
  Report Type: Spontaneous
  Country: US (occurrence: US)
  Receive Date: 20180315
  Receipt Date: 20180409
  Transmission Date: 20180711
  Serious: Yes (Other)
  Sender: FDA-Public Use
  Company Number: US-TEVA-2018-US-869738

PATIENT
  Age: 15 Year
  Sex: Male

DRUGS (8)
  1. AZITHROMYCIN ANHYDROUS. [Concomitant]
     Active Substance: AZITHROMYCIN ANHYDROUS
     Route: 065
  2. METHYLPREDNISOLONE. [Suspect]
     Active Substance: METHYLPREDNISOLONE
     Indication: COLITIS ULCERATIVE
     Route: 065
  3. METRONIDAZOLE. [Concomitant]
     Active Substance: METRONIDAZOLE
     Route: 065
  4. INFLIXIMAB [Suspect]
     Active Substance: INFLIXIMAB
     Indication: COLITIS ULCERATIVE
     Route: 065
  5. PREDNISONE. [Suspect]
     Active Substance: PREDNISONE
     Indication: COLITIS ULCERATIVE
     Route: 065
  6. CEFEPIME [Concomitant]
     Active Substance: CEFEPIME HYDROCHLORIDE
     Route: 065
  7. MERCAPTOPURINE. [Suspect]
     Active Substance: MERCAPTOPURINE
     Indication: COLITIS ULCERATIVE
     Route: 065
  8. VANCOMYCIN [Concomitant]
     Active Substance: VANCOMYCIN
     Route: 065

REACTIONS (2)
  - Bifidobacterium infection [Recovering/Resolving]
  - Bacteraemia [Recovering/Resolving]
